FAERS Safety Report 6528970-6 (Version None)
Quarter: 2010Q1

REPORT INFORMATION
  Report Type: 
  Country: None (occurrence: None)
  Receive Date: 20100106
  Receipt Date: 20091230
  Transmission Date: 20100710
  Serious: Yes (Hospitalization)
  Sender: FDA-Public Use
  Company Number: GB-MERCK-00055020

PATIENT
  Age: 48 Year
  Sex: Female

DRUGS (4)
  1. SINGULAIR [Suspect]
     Indication: ASTHMA
     Route: 048
     Dates: start: 20000322, end: 20000407
  2. THYROXINE [Concomitant]
     Route: 048
  3. FLUTICASONE PROPIONATE [Concomitant]
     Route: 055
  4. EVENING PRIMROSE OIL [Concomitant]
     Route: 065

REACTIONS (1)
  - PSYCHOTIC DISORDER [None]
